FAERS Safety Report 23646916 (Version 1)
Quarter: 2024Q1

REPORT INFORMATION
  Report Type: Spontaneous
  Country: CA (occurrence: CA)
  Receive Date: 20240319
  Receipt Date: 20240319
  Transmission Date: 20240409
  Serious: Yes (Death, Other)
  Sender: FDA-Public Use
  Company Number: None

PATIENT

DRUGS (2)
  1. METHOTREXATE SODIUM [Suspect]
     Active Substance: METHOTREXATE SODIUM
     Indication: B-cell lymphoma
     Route: 065
  2. CYTARABINE [Concomitant]
     Active Substance: CYTARABINE

REACTIONS (3)
  - Brain neoplasm [Fatal]
  - Disease progression [Fatal]
  - Off label use [Fatal]
